FAERS Safety Report 7547272-2 (Version None)
Quarter: 2011Q2

REPORT INFORMATION
  Report Type: 
  Country: None (occurrence: None)
  Receive Date: 20110614
  Receipt Date: 20110601
  Transmission Date: 20111010
  Serious: Yes (Other)
  Sender: FDA-Public Use
  Company Number: GB-AMGEN-GBRSP2011022297

PATIENT
  Age: 55 Year
  Sex: Female
  Weight: 70 kg

DRUGS (6)
  1. WARFARIN SODIUM [Suspect]
     Dosage: UNK
     Route: 048
  2. ATENOLOL [Concomitant]
     Dosage: 50 MG, UNK
     Route: 048
  3. DILTIAZEM [Concomitant]
     Dosage: 180 MG, UNK
     Route: 048
  4. HYDROXYCHLOROQUINE SULFATE [Concomitant]
     Dosage: 200 MG, 2X/DAY
  5. ENBREL [Suspect]
     Indication: RHEUMATOID ARTHRITIS
     Dosage: 50 MG, WEEKLY
     Route: 058
     Dates: start: 20110201
  6. AZULFIDINE [Concomitant]
     Dosage: 1 G, 2X/DAY

REACTIONS (1)
  - INTERNATIONAL NORMALISED RATIO INCREASED [None]
